FAERS Safety Report 16058471 (Version 2)
Quarter: 2019Q2

REPORT INFORMATION
  Report Type: Spontaneous
  Country: US (occurrence: US)
  Receive Date: 20190311
  Receipt Date: 20190403
  Transmission Date: 20190711
  Serious: No
  Sender: FDA-Public Use
  Company Number: US-ALKERMES INC.-ALK-2019-001296

PATIENT
  Age: 34 Year
  Sex: Male
  Weight: 98.87 kg

DRUGS (4)
  1. VIVITROL [Suspect]
     Active Substance: NALTREXONE
     Indication: ALCOHOLISM
  2. VIVITROL [Suspect]
     Active Substance: NALTREXONE
     Indication: DRUG DEPENDENCE
     Dosage: 380 MG, Q3WK
     Route: 030
     Dates: start: 20170411
  3. NICOTINE. [Suspect]
     Active Substance: NICOTINE
  4. VIT D [Concomitant]
     Active Substance: VITAMIN D NOS
     Indication: PRODUCT USED FOR UNKNOWN INDICATION

REACTIONS (3)
  - Libido decreased [Not Recovered/Not Resolved]
  - Off label use [Not Recovered/Not Resolved]
  - Libido increased [Unknown]

NARRATIVE: CASE EVENT DATE: 20170414
